FAERS Safety Report 18192988 (Version 7)
Quarter: 2021Q3

REPORT INFORMATION
  Report Type: Spontaneous
  Country: DE (occurrence: DE)
  Receive Date: 20200825
  Receipt Date: 20210925
  Transmission Date: 20211014
  Serious: Yes (Other)
  Sender: FDA-Public Use
  Company Number: NVSC2020DE114113

PATIENT
  Age: 42 Year
  Sex: Female

DRUGS (4)
  1. URBASON [Concomitant]
     Active Substance: METHYLPREDNISOLONE
     Indication: PREMEDICATION
     Dosage: UNK
     Route: 065
  2. KORODIN [Concomitant]
     Active Substance: CAMPHOR (SYNTHETIC)\MENTHOL
     Indication: PRODUCT USED FOR UNKNOWN INDICATION
     Dosage: UNK UNK, PRN (AS REQUIRED)
     Route: 065
     Dates: end: 20210215
  3. PREDNISOLONE. [Suspect]
     Active Substance: PREDNISOLONE
     Indication: PREMEDICATION
     Dosage: UNK
     Route: 065
  4. THOMAPYRIN [Concomitant]
     Indication: PREMEDICATION
     Dosage: UNK
     Route: 065

REACTIONS (20)
  - Arrhythmia [Recovered/Resolved]
  - Blood pressure increased [Recovered/Resolved]
  - Depressed mood [Not Recovered/Not Resolved]
  - Musculoskeletal stiffness [Recovered/Resolved]
  - Herpes zoster [Recovering/Resolving]
  - Arrhythmia [Not Recovered/Not Resolved]
  - Fatigue [Recovered/Resolved]
  - Abdominal discomfort [Recovering/Resolving]
  - Extrasystoles [Recovered/Resolved]
  - Palpitations [Recovered/Resolved]
  - Dizziness [Not Recovered/Not Resolved]
  - Abdominal pain upper [Recovering/Resolving]
  - Heart rate increased [Recovered/Resolved]
  - Abdominal distension [Recovering/Resolving]
  - Head discomfort [Not Recovered/Not Resolved]
  - Cardiovascular disorder [Unknown]
  - Diplopia [Not Recovered/Not Resolved]
  - Dyspepsia [Recovering/Resolving]
  - Headache [Not Recovered/Not Resolved]
  - Listless [Not Recovered/Not Resolved]

NARRATIVE: CASE EVENT DATE: 201905
